FAERS Safety Report 19203416 (Version 2)
Quarter: 2021Q2

REPORT INFORMATION
  Report Type: Spontaneous
  Country: JP (occurrence: JP)
  Receive Date: 20210503
  Receipt Date: 20210507
  Transmission Date: 20210717
  Serious: Yes (Death)
  Sender: FDA-Public Use
  Company Number: JP-UCBSA-2021019336

PATIENT
  Age: 82 Year
  Sex: Male

DRUGS (2)
  1. E KEPPRA [Suspect]
     Active Substance: LEVETIRACETAM
     Dosage: 500 MILLIGRAM, 2X/DAY (BID)
     Route: 058
  2. E KEPPRA [Suspect]
     Active Substance: LEVETIRACETAM
     Indication: EPILEPSY
     Dosage: 500 MILLIGRAM, 2X/DAY (BID)
     Route: 042

REACTIONS (3)
  - Death [Fatal]
  - Rash [Recovering/Resolving]
  - Off label use [Unknown]
